FAERS Safety Report 7663415-4 (Version None)
Quarter: 2011Q3

REPORT INFORMATION
  Report Type: 
  Country: None (occurrence: None)
  Receive Date: 20110805
  Receipt Date: 20100909
  Transmission Date: 20111222
  Serious: No
  Sender: FDA-Public Use
  Company Number: US-ABBOTT-10P-163-0639424-00

PATIENT
  Sex: Male
  Weight: 79.45 kg

DRUGS (12)
  1. NIASPAN [Suspect]
     Dates: start: 20100101
  2. ASCORBIC ACID [Concomitant]
     Indication: VITAMIN SUPPLEMENTATION
  3. FISH OIL [Concomitant]
     Indication: PRODUCT USED FOR UNKNOWN INDICATION
  4. AVODART [Suspect]
     Indication: PROSTATOMEGALY
     Dates: start: 20080101
  5. CALCIUM ACETATE [Concomitant]
     Indication: PRODUCT USED FOR UNKNOWN INDICATION
  6. MULTIPLE VITAMINS [Concomitant]
     Indication: VITAMIN SUPPLEMENTATION
  7. GINKO BILOBA [Concomitant]
     Indication: PRODUCT USED FOR UNKNOWN INDICATION
  8. VITAMIN D [Concomitant]
     Indication: VITAMIN SUPPLEMENTATION
  9. DIOVAN [Concomitant]
     Indication: HYPERTENSION
  10. OMEPRAZOLE [Concomitant]
     Indication: GASTROOESOPHAGEAL REFLUX DISEASE
  11. NIASPAN [Suspect]
     Indication: BLOOD TRIGLYCERIDES INCREASED
     Dates: start: 20090901, end: 20100101
  12. FLOMAX [Concomitant]
     Indication: PROSTATIC DISORDER

REACTIONS (15)
  - HYPERHIDROSIS [None]
  - SENSORY DISTURBANCE [None]
  - PRURITUS [None]
  - PAIN IN EXTREMITY [None]
  - LIPIDS INCREASED [None]
  - ABNORMAL DREAMS [None]
  - ASTHENIA [None]
  - MUSCULAR WEAKNESS [None]
  - MUSCLE DISORDER [None]
  - FLUSHING [None]
  - MYALGIA [None]
  - FATIGUE [None]
  - ANXIETY [None]
  - ARTHRALGIA [None]
  - PALPITATIONS [None]
